FAERS Safety Report 9904068 (Version 1)
Quarter: 2014Q1

REPORT INFORMATION
  Report Type: Spontaneous
  Country: US (occurrence: US)
  Receive Date: 20140218
  Receipt Date: 20140218
  Transmission Date: 20141002
  Serious: No
  Sender: FDA-Public Use
  Company Number: US-BIOGENIDEC-2014BI012697

PATIENT
  Age: 30 Year
  Sex: Female

DRUGS (1)
  1. TECFIDERA [Suspect]
     Indication: MULTIPLE SCLEROSIS
     Route: 048
     Dates: start: 20140204, end: 20140204

REACTIONS (11)
  - Pain of skin [Recovered/Resolved]
  - Swelling face [Recovered/Resolved]
  - Hypoaesthesia [Recovered/Resolved]
  - Palpitations [Recovered/Resolved]
  - Urticaria [Recovered/Resolved]
  - Skin disorder [Recovered/Resolved]
  - Dyspnoea [Recovered/Resolved]
  - Disorientation [Recovered/Resolved]
  - Nausea [Recovered/Resolved]
  - Flushing [Recovered/Resolved]
  - Erythema [Recovered/Resolved]
